FAERS Safety Report 8973229 (Version 2)
Quarter: 2013Q1

REPORT INFORMATION
  Report Type: Report from Study
  Country: FR (occurrence: FR)
  Receive Date: 20121218
  Receipt Date: 20130213
  Transmission Date: 20140127
  Serious: Yes (Hospitalization)
  Sender: FDA-Public Use
  Company Number: FR-CELGENEUS-056-21880-12120678

PATIENT
  Age: 41 Year
  Sex: Female

DRUGS (14)
  1. REVLIMID [Suspect]
     Indication: PLASMA CELL MYELOMA
     Route: 048
     Dates: start: 20120316, end: 20120909
  2. BORTEZOMIB [Suspect]
     Indication: PLASMA CELL MYELOMA
     Route: 065
     Dates: start: 20120316, end: 20120905
  3. DEXAMETHASONE [Suspect]
     Indication: PLASMA CELL MYELOMA
     Route: 065
     Dates: start: 20120316, end: 20120907
  4. BACTRIM [Concomitant]
     Indication: INFECTION PROPHYLAXIS
     Dosage: 400 MILLIGRAM
     Route: 048
     Dates: start: 20120316
  5. ZELITREX [Concomitant]
     Indication: INFECTION PROPHYLAXIS
     Dosage: 1 GRAM
     Route: 048
     Dates: start: 20120316
  6. CLAMOXYL [Concomitant]
     Indication: INFECTION PROPHYLAXIS
     Dosage: 2 GRAM
     Route: 048
     Dates: start: 20120316
  7. LOVENOX [Concomitant]
     Indication: PROPHYLAXIS
     Route: 058
     Dates: start: 20120316
  8. OXYCONTIN [Concomitant]
     Indication: PAIN
     Dosage: 60 MILLIGRAM
     Route: 065
     Dates: start: 20120316
  9. OXYNORM [Concomitant]
     Indication: PAIN
     Route: 065
     Dates: start: 20120316
  10. LYSANXIA [Concomitant]
     Indication: PRODUCT USED FOR UNKNOWN INDICATION
     Dosage: 10 MILLIGRAM
     Route: 065
     Dates: start: 20120316
  11. KALEORID [Concomitant]
     Indication: PRODUCT USED FOR UNKNOWN INDICATION
     Route: 065
     Dates: start: 20120914
  12. NOVOMIX [Concomitant]
     Indication: DIABETES MELLITUS
     Route: 065
  13. VITAMIN K [Concomitant]
     Indication: PRODUCT USED FOR UNKNOWN INDICATION
     Route: 065
  14. NOVORAPID [Concomitant]
     Indication: DIABETES MELLITUS
     Route: 065

REACTIONS (1)
  - Intracardiac thrombus [Recovered/Resolved]
